FAERS Safety Report 5070392-1 (Version None)
Quarter: 2006Q3

REPORT INFORMATION
  Report Type: 
  Country: None (occurrence: None)
  Receive Date: 20060802
  Receipt Date: 20060724
  Transmission Date: 20061208
  Serious: Yes (Other)
  Sender: FDA-Public Use
  Company Number: L06-IND-02905-01

PATIENT
  Age: 27 Year
  Sex: Female

DRUGS (5)
  1. CARBAMAZEPINE [Suspect]
     Indication: AGGRESSION
     Dosage: 400 MG
  2. CARBAMAZEPINE [Suspect]
     Indication: MANIA
     Dosage: 400 MG
  3. RISPERIDONE [Concomitant]
  4. CLONAZEPAM [Concomitant]
  5. LITHIUM [Concomitant]

REACTIONS (15)
  - ANGIONEUROTIC OEDEMA [None]
  - BLOOD SODIUM DECREASED [None]
  - CONDITION AGGRAVATED [None]
  - DIZZINESS [None]
  - EOSINOPHIL PERCENTAGE DECREASED [None]
  - LYMPHOCYTE PERCENTAGE DECREASED [None]
  - MANIA [None]
  - MONOCYTE PERCENTAGE DECREASED [None]
  - PRURITUS [None]
  - PYREXIA [None]
  - RASH MACULO-PAPULAR [None]
  - SKIN DISCOLOURATION [None]
  - SWELLING [None]
  - SYNCOPE [None]
  - VOMITING [None]
